FAERS Safety Report 4467076-7 (Version None)
Quarter: 2004Q4

REPORT INFORMATION
  Report Type: 
  Country: None (occurrence: None)
  Receive Date: 20041004
  Receipt Date: 20040924
  Transmission Date: 20050328
  Serious: Yes (Other)
  Sender: FDA-Public Use
  Company Number: 2004220654US

PATIENT
  Sex: 0

DRUGS (8)
  1. DEPO-PROVERA [Suspect]
     Indication: CONTRACEPTION
     Dates: start: 20040308, end: 20040308
  2. DEPO-PROVERA [Suspect]
  3. DEPO-PROVERA [Suspect]
     Dates: start: 20010101, end: 20010101
  4. DEPO-PROVERA [Suspect]
     Dates: start: 20030416, end: 20030416
  5. DEPO-PROVERA [Suspect]
     Dates: start: 20030707, end: 20030707
  6. DEPO-PROVERA [Suspect]
     Dates: start: 20030925, end: 20030925
  7. DEPO-PROVERA [Suspect]
     Dates: start: 20031211, end: 20031211
  8. DEPO-PROVERA [Suspect]
     Dates: start: 20010101, end: 20040524

REACTIONS (7)
  - BREAST TENDERNESS [None]
  - DRUG EXPOSURE DURING PREGNANCY [None]
  - FOETAL HEART RATE ABNORMAL [None]
  - HOT FLUSH [None]
  - METRORRHAGIA [None]
  - MOOD SWINGS [None]
  - UNINTENDED PREGNANCY [None]
